FAERS Safety Report 11215402 (Version 1)
Quarter: 2015Q2

REPORT INFORMATION
  Report Type: Spontaneous
  Country: GB (occurrence: GB)
  Receive Date: 20150624
  Receipt Date: 20150624
  Transmission Date: 20150821
  Serious: Yes (Hospitalization)
  Sender: FDA-Public Use
  Company Number: GB-WATSON-2015-12398

PATIENT
  Age: 41 Year
  Sex: Male
  Weight: 89.7 kg

DRUGS (6)
  1. CISPLATIN (UNKNOWN) [Suspect]
     Active Substance: CISPLATIN
     Indication: TESTIS CANCER
     Dosage: 30000 IU, CYCLICAL
     Route: 042
     Dates: start: 20150413
  2. LANSOPRAZOLE. [Concomitant]
     Active Substance: LANSOPRAZOLE
     Indication: PRODUCT USED FOR UNKNOWN INDICATION
     Dosage: 30 MG, UNK
     Route: 048
  3. CYCLIZINE [Concomitant]
     Active Substance: CYCLIZINE
     Indication: PRODUCT USED FOR UNKNOWN INDICATION
     Dosage: 50 MG, UNK
     Route: 048
     Dates: start: 20150515
  4. ONDANSETRON [Concomitant]
     Active Substance: ONDANSETRON
     Indication: PRODUCT USED FOR UNKNOWN INDICATION
     Dosage: UNK. DURING CHEMOTHERAPY
     Route: 065
     Dates: start: 20150413, end: 20150415
  5. ETOPOSIDE (UNKNOWN) [Suspect]
     Active Substance: ETOPOSIDE
     Indication: TESTIS CANCER
     Dosage: 30000 IU, CYCLICAL. CYCLE 1
     Route: 042
     Dates: start: 20150413
  6. BLEOMYCIN [Suspect]
     Active Substance: BLEOMYCIN SULFATE
     Indication: TESTIS CANCER
     Dosage: 30000 IU, CYCLICAL. CYCLE 1
     Route: 042
     Dates: start: 20150413

REACTIONS (2)
  - Acute kidney injury [Not Recovered/Not Resolved]
  - Nausea [Not Recovered/Not Resolved]

NARRATIVE: CASE EVENT DATE: 20150420
